FAERS Safety Report 8905417 (Version 1)
Quarter: 2012Q4

REPORT INFORMATION
  Report Type: 
  Country: US (occurrence: US)
  Receive Date: 20121112
  Receipt Date: 20121112
  Transmission Date: 20130627
  Serious: Yes (Hospitalization)
  Sender: FDA-Public Use
  Company Number: US-BAYER-2012-116925

PATIENT
  Age: 19 Year
  Sex: Female

DRUGS (9)
  1. YAZ [Suspect]
     Indication: DYSMENORRHEA
  2. YAZ [Suspect]
     Indication: PREMENSTRUAL SYNDROME
  3. ZITHROMAX [Concomitant]
  4. TUSSI-12 [Concomitant]
     Indication: COUGH
     Dosage: One q (interpreted as every) 12 h (interpreted as hours) prn (interpreted as as needed)
  5. INDERAL LA [Concomitant]
     Dosage: 80 mg, daily
  6. DETROL LA [Concomitant]
     Dosage: 4 mg, daily
  7. ULTRAM [Concomitant]
     Indication: PAIN
     Dosage: 50 mg, TID
  8. BACLOFEN [Concomitant]
     Dosage: UNK
     Dates: start: 20071214
  9. MACROBID [Concomitant]

REACTIONS (1)
  - Deep vein thrombosis [None]
